FAERS Safety Report 11897773 (Version 1)
Quarter: 2016Q1

REPORT INFORMATION
  Report Type: Spontaneous
  Country: US (occurrence: None)
  Receive Date: 20160107
  Receipt Date: 20160107
  Transmission Date: 20160526
  Serious: Yes (Death)
  Sender: FDA-Public Use
  Company Number: None

PATIENT
  Age: 89 Year
  Sex: Male
  Weight: 95.26 kg

DRUGS (10)
  1. COREG [Concomitant]
     Active Substance: CARVEDILOL
  2. MECARDI [Concomitant]
  3. PROTONIX [Concomitant]
     Active Substance: PANTOPRAZOLE SODIUM
  4. PLAVIX [Concomitant]
     Active Substance: CLOPIDOGREL BISULFATE
  5. PRADAXA [Suspect]
     Active Substance: DABIGATRAN ETEXILATE MESYLATE
     Indication: ANTICOAGULANT THERAPY
     Route: 048
     Dates: end: 20150101
  6. KLONOPIN [Concomitant]
     Active Substance: CLONAZEPAM
  7. DEMECOCYCLINE [Concomitant]
  8. MIRTAZAPINE. [Concomitant]
     Active Substance: MIRTAZAPINE
  9. AZILECT [Concomitant]
     Active Substance: RASAGILINE MESYLATE
  10. SIMVASTATIN. [Concomitant]
     Active Substance: SIMVASTATIN

REACTIONS (4)
  - Flank pain [None]
  - Pain in extremity [None]
  - Contusion [None]
  - Thrombosis [None]
